FAERS Safety Report 19724177 (Version 1)
Quarter: 2021Q3

REPORT INFORMATION
  Report Type: Report from Study
  Country: US (occurrence: US)
  Receive Date: 20210819
  Receipt Date: 20210819
  Transmission Date: 20211014
  Serious: No
  Sender: FDA-Public Use
  Company Number: US-IPSEN BIOPHARMACEUTICALS, INC.-2021-20074

PATIENT
  Sex: Male

DRUGS (8)
  1. METOPROLOL. [Concomitant]
     Active Substance: METOPROLOL
  2. JARDIANCE [Concomitant]
     Active Substance: EMPAGLIFLOZIN
  3. RAMIPRIL. [Concomitant]
     Active Substance: RAMIPRIL
  4. PROMACTA [Concomitant]
     Active Substance: ELTROMBOPAG OLAMINE
  5. JANUVIA [Concomitant]
     Active Substance: SITAGLIPTIN PHOSPHATE
  6. ATORVASTATIN [Concomitant]
     Active Substance: ATORVASTATIN
  7. SOMATULINE DEPOT [Suspect]
     Active Substance: LANREOTIDE ACETATE
     Indication: CARCINOID TUMOUR OF THE SMALL BOWEL
     Route: 058
  8. INSULIN PEN [Concomitant]
     Active Substance: INSULIN NOS

REACTIONS (3)
  - Injection site pain [Recovered/Resolved]
  - Diarrhoea [Unknown]
  - Injection site mass [Recovered/Resolved]
